FAERS Safety Report 10567048 (Version 3)
Quarter: 2015Q1

REPORT INFORMATION
  Report Type: Spontaneous
  Country: KR (occurrence: KR)
  Receive Date: 20141105
  Receipt Date: 20150216
  Transmission Date: 20150720
  Serious: Yes (Disabling, Other)
  Sender: FDA-Public Use
  Company Number: KR-GILEAD-2014-0121255

PATIENT
  Age: 43 Year
  Sex: Male

DRUGS (2)
  1. ENTECAVIR. [Concomitant]
     Active Substance: ENTECAVIR
     Indication: CHRONIC HEPATITIS B
     Dosage: UNK
  2. HEPSERA [Suspect]
     Active Substance: ADEFOVIR DIPIVOXIL
     Indication: CHRONIC HEPATITIS B
     Dosage: 10 MG, QD
     Route: 065

REACTIONS (4)
  - Stress fracture [Recovered/Resolved]
  - Pain [Recovered/Resolved]
  - Hypophosphataemia [Recovered/Resolved]
  - Arthralgia [Recovered/Resolved]
